FAERS Safety Report 9644223 (Version 4)
Quarter: 2014Q2

REPORT INFORMATION
  Report Type: Report from Study
  Country: AU (occurrence: AU)
  Receive Date: 20131024
  Receipt Date: 20140630
  Transmission Date: 20141212
  Serious: Yes (Hospitalization)
  Sender: FDA-Public Use
  Company Number: AU-ROCHE-1289683

PATIENT
  Age: 50 Year
  Sex: Female
  Weight: 85.4 kg

DRUGS (8)
  1. TRASTUZUMAB [Suspect]
     Indication: HER-2 POSITIVE BREAST CANCER
     Dosage: LOADING DOSE FOR CYCLE 1 ONLY.
     Route: 042
     Dates: start: 20130417
  2. TRASTUZUMAB [Suspect]
     Dosage: MAINTENANCE DOSE 6 MG/KG.?LAST DOSE PRIOR TO SAE 02/OCT/2013.
     Route: 042
  3. VALTREX [Concomitant]
     Route: 065
     Dates: start: 20130213
  4. SOMAC [Concomitant]
     Route: 065
     Dates: start: 20130508
  5. ENDEP [Concomitant]
     Route: 065
     Dates: start: 20130710
  6. NASONEX [Concomitant]
     Route: 065
     Dates: start: 20130529
  7. PERTUZUMAB [Suspect]
     Indication: HER-2 POSITIVE BREAST CANCER
     Dosage: LOADING DOSE
     Route: 042
     Dates: start: 20130417
  8. PERTUZUMAB [Suspect]
     Dosage: MAINTENANCE DOSE?LAST DOSE PRIOR TO SAE 02/OCT/2013
     Route: 042

REACTIONS (1)
  - Herpes zoster [Recovered/Resolved with Sequelae]
